FAERS Safety Report 6372831-2 (Version None)
Quarter: 2009Q3

REPORT INFORMATION
  Report Type: 
  Country: None (occurrence: None)
  Receive Date: 20090924
  Receipt Date: 20090112
  Transmission Date: 20100115
  Serious: Yes (Other)
  Sender: FDA-Public Use
  Company Number: US-ASTRAZENECA-2008UW26574

PATIENT
  Age: 36 Year
  Sex: Female
  Weight: 68 kg

DRUGS (9)
  1. SEROQUEL XR [Suspect]
     Indication: BIPOLAR I DISORDER
     Route: 048
  2. SEROQUEL [Suspect]
     Route: 048
     Dates: start: 20060101
  3. SEROQUEL [Suspect]
     Route: 048
     Dates: start: 20060101
  4. NEURONTIN [Concomitant]
  5. TEGRETOL [Concomitant]
  6. PHENOBARBITAL TAB [Concomitant]
  7. LAMICTAL [Concomitant]
  8. LEXAPRO [Concomitant]
  9. REMERON [Concomitant]

REACTIONS (5)
  - CONVULSION [None]
  - HEADACHE [None]
  - MUSCLE SPASMS [None]
  - MYALGIA [None]
  - SOMNOLENCE [None]
